FAERS Safety Report 15940793 (Version 2)
Quarter: 2019Q1

REPORT INFORMATION
  Report Type: Spontaneous
  Country: US (occurrence: US)
  Receive Date: 20190208
  Receipt Date: 20190227
  Transmission Date: 20190417
  Serious: Yes (Other)
  Sender: FDA-Public Use
  Company Number: US-ASTRAZENECA-2018SF14271

PATIENT
  Age: 24786 Day
  Sex: Male

DRUGS (18)
  1. PROTONIX [Suspect]
     Active Substance: PANTOPRAZOLE SODIUM
     Route: 065
     Dates: start: 2011, end: 2016
  2. DEXILANT [Suspect]
     Active Substance: DEXLANSOPRAZOLE
     Route: 065
     Dates: start: 2011, end: 2016
  3. AMITRIPTYLINE [Concomitant]
     Active Substance: AMITRIPTYLINE
  4. NEXIUM 24HR [Suspect]
     Active Substance: ESOMEPRAZOLE MAGNESIUM
     Route: 048
     Dates: start: 2011, end: 2016
  5. PRILOSEC [Suspect]
     Active Substance: OMEPRAZOLE MAGNESIUM
     Dosage: OMEPRAZOLE-TAKE 1 CAPSULE(S) TWICE A DAY BY ORAL ROUTE
     Route: 048
     Dates: start: 20160928
  6. PREVACID 24 HR [Suspect]
     Active Substance: LANSOPRAZOLE
     Route: 065
     Dates: start: 2011, end: 2016
  7. BUPROPION. [Concomitant]
     Active Substance: BUPROPION
  8. CARVEDILOL. [Concomitant]
     Active Substance: CARVEDILOL
  9. BENAZEPRIL [Concomitant]
     Active Substance: BENAZEPRIL HYDROCHLORIDE
  10. TIZANIDINE. [Concomitant]
     Active Substance: TIZANIDINE
  11. NEXIUM [Suspect]
     Active Substance: ESOMEPRAZOLE MAGNESIUM
     Route: 048
     Dates: start: 2011, end: 2016
  12. RESTORIL [Concomitant]
     Active Substance: TEMAZEPAM
  13. PRILOSEC OTC [Suspect]
     Active Substance: OMEPRAZOLE MAGNESIUM
     Route: 048
     Dates: start: 2011, end: 2016
  14. PREVACID [Suspect]
     Active Substance: LANSOPRAZOLE
     Route: 065
     Dates: start: 2011, end: 2016
  15. AMLODIPINE [Concomitant]
     Active Substance: AMLODIPINE BESYLATE
  16. PRILOSEC [Suspect]
     Active Substance: OMEPRAZOLE MAGNESIUM
     Route: 048
     Dates: start: 2011, end: 2016
  17. LAMOTRIGINE. [Concomitant]
     Active Substance: LAMOTRIGINE
  18. VOLTAREN [Concomitant]
     Active Substance: DICLOFENAC SODIUM

REACTIONS (3)
  - Renal injury [Unknown]
  - Chronic kidney disease [Unknown]
  - End stage renal disease [Unknown]

NARRATIVE: CASE EVENT DATE: 20160928
